FAERS Safety Report 6701878-9 (Version None)
Quarter: 2010Q2

REPORT INFORMATION
  Report Type: 
  Country: None (occurrence: None)
  Receive Date: 20100429
  Receipt Date: 20100421
  Transmission Date: 20101027
  Serious: Yes (Hospitalization)
  Sender: FDA-Public Use
  Company Number: CA-ASTRAZENECA-2010SE11487

PATIENT
  Age: 74 Year
  Sex: Female

DRUGS (5)
  1. NEXIUM [Suspect]
     Route: 048
     Dates: start: 20091201, end: 20100201
  2. DIVITEN (PATIENT NOT SURE) [Concomitant]
  3. SYNTHROID [Concomitant]
  4. LIPITOR [Concomitant]
  5. DECONTRACTE [Concomitant]
     Indication: INSOMNIA
     Dates: start: 20100101, end: 20100101

REACTIONS (6)
  - DIZZINESS [None]
  - DYSPNOEA [None]
  - NAUSEA [None]
  - PALPITATIONS [None]
  - TACHYCARDIA [None]
  - VOMITING [None]
